FAERS Safety Report 8176144-8 (Version None)
Quarter: 2012Q1

REPORT INFORMATION
  Report Type: 
  Country: None (occurrence: None)
  Receive Date: 20120301
  Receipt Date: 20120227
  Transmission Date: 20120608
  Serious: Yes (Other)
  Sender: FDA-Public Use
  Company Number: US-PFIZER INC-2012046090

PATIENT
  Sex: Female
  Weight: 73 kg

DRUGS (8)
  1. LISINOPRIL [Concomitant]
     Dosage: 10 MG, UNK
  2. ADVAIR DISKUS 100/50 [Concomitant]
     Dosage: UNK
  3. ALBUTEROL [Concomitant]
     Dosage: UNK
  4. XANAX [Concomitant]
     Indication: ANXIETY
     Dosage: UNK
  5. AMITRIPTYLINE [Concomitant]
     Dosage: 20 MG, 2X/DAY
  6. ZYRTEC [Concomitant]
     Indication: RHINITIS ALLERGIC
     Dosage: UNK
  7. PROTONIX [Suspect]
     Indication: GASTROOESOPHAGEAL REFLUX DISEASE
     Dosage: 40 MG, 2X/DAY
     Route: 048
  8. HYDROCHLOROTHIAZIDE [Concomitant]
     Dosage: 25 MG, UNK

REACTIONS (1)
  - INTESTINAL OBSTRUCTION [None]
